FAERS Safety Report 14259377 (Version 1)
Quarter: 2017Q4

REPORT INFORMATION
  Report Type: Spontaneous
  Country: US (occurrence: US)
  Receive Date: 20171207
  Receipt Date: 20171207
  Transmission Date: 20180321
  Serious: Yes (Death)
  Sender: FDA-Public Use
  Company Number: US-LUNDBECK-DKLU2040921

PATIENT
  Age: 85 Year
  Sex: Male

DRUGS (1)
  1. NORTHERA [Suspect]
     Active Substance: DROXIDOPA
     Indication: VARICES OESOPHAGEAL
     Route: 048
     Dates: start: 20170912

REACTIONS (1)
  - Death [Fatal]

NARRATIVE: CASE EVENT DATE: 20171127
